FAERS Safety Report 25726090 (Version 1)
Quarter: 2025Q3

REPORT INFORMATION
  Report Type: Spontaneous
  Country: US (occurrence: None)
  Receive Date: 20250824
  Receipt Date: 20250824
  Transmission Date: 20251020
  Serious: Yes (Other)
  Sender: FDA-CTU
  Company Number: None

PATIENT
  Age: 54 Year
  Sex: Female
  Weight: 102.15 kg

DRUGS (8)
  1. WEGOVY [Suspect]
     Active Substance: SEMAGLUTIDE
     Indication: Weight decreased
     Route: 058
     Dates: start: 20250813
  2. ROSUVASTATIN [Concomitant]
     Active Substance: ROSUVASTATIN
  3. MONTELUKAST [Concomitant]
     Active Substance: MONTELUKAST
  4. HYDROCHLOROTHIAZIDE\IRBESARTAN [Concomitant]
     Active Substance: HYDROCHLOROTHIAZIDE\IRBESARTAN
  5. CARVEDILOL [Concomitant]
     Active Substance: CARVEDILOL
  6. Nefedipine [Concomitant]
  7. Chasteberry [Concomitant]
  8. I-theanine [Concomitant]

REACTIONS (4)
  - Arthralgia [None]
  - Weight increased [None]
  - Arthralgia [None]
  - Inflammation [None]

NARRATIVE: CASE EVENT DATE: 20250814
